FAERS Safety Report 10024062 (Version 1)
Quarter: 2014Q1

REPORT INFORMATION
  Report Type: Spontaneous
  Country: US (occurrence: None)
  Receive Date: 20140318
  Receipt Date: 20140318
  Transmission Date: 20141002
  Serious: Yes (Hospitalization)
  Sender: FDA-Public Use
  Company Number: None

PATIENT
  Age: 39 Year
  Sex: Male
  Weight: 116 kg

DRUGS (8)
  1. INVEGA SUSTENNA [Suspect]
     Indication: SCHIZOAFFECTIVE DISORDER
     Route: 030
     Dates: start: 20140210
  2. MULTIVITAMIN [Concomitant]
  3. FISH OIL [Concomitant]
  4. PRAVASTATIN [Concomitant]
  5. HALOPERIDOL [Concomitant]
  6. LITHIUM ER [Concomitant]
  7. PROPRANOLOL [Concomitant]
  8. LORAZEPAM [Concomitant]

REACTIONS (7)
  - Fall [None]
  - Muscular weakness [None]
  - Hypoaesthesia [None]
  - Extrapyramidal disorder [None]
  - Tonic convulsion [None]
  - Muscle rigidity [None]
  - Dysphagia [None]
